FAERS Safety Report 5341128-1 (Version None)
Quarter: 2007Q2

REPORT INFORMATION
  Report Type: 
  Country: None (occurrence: None)
  Receive Date: 20070405
  Receipt Date: 20061211
  Transmission Date: 20071010
  Serious: Yes (Death)
  Sender: FDA-Public Use
  Company Number: 2006P1000584

PATIENT
  Age: 24 Year
  Sex: Male

DRUGS (5)
  1. BUSULFAN (BUSULFAN) [Suspect]
     Indication: STEM CELL TRANSPLANT
     Dosage: 3.2 MG/KG; QID; IV
     Route: 042
     Dates: start: 20061106, end: 20061107
  2. CYTARABINE [Concomitant]
  3. CYCLOPHOSPHAMIDE [Concomitant]
  4. VALPROATE SODIUM [Concomitant]
  5. NIMUSTINE [Concomitant]

REACTIONS (1)
  - PNEUMONIA STAPHYLOCOCCAL [None]
